FAERS Safety Report 8992927 (Version 7)
Quarter: 2014Q1

REPORT INFORMATION
  Report Type: Report from Study
  Country: US (occurrence: US)
  Receive Date: 20130102
  Receipt Date: 20140107
  Transmission Date: 20141002
  Serious: Yes (Hospitalization)
  Sender: FDA-Public Use
  Company Number: US-JNJFOC-20121211855

PATIENT
  Age: 19 Year
  Sex: Male
  Weight: 58.5 kg

DRUGS (2)
  1. REMICADE [Suspect]
     Indication: INFLAMMATORY BOWEL DISEASE
     Route: 042
     Dates: start: 20110805, end: 20120725
  2. METHOTREXATE [Concomitant]
     Dates: start: 201211, end: 201301

REACTIONS (1)
  - Perirectal abscess [Recovered/Resolved]
